FAERS Safety Report 9775106 (Version 1)
Quarter: 2013Q4

REPORT INFORMATION
  Report Type: Spontaneous
  Country: JP (occurrence: JP)
  Receive Date: 20131220
  Receipt Date: 20131220
  Transmission Date: 20140711
  Serious: Yes (Other)
  Sender: FDA-Public Use
  Company Number: JP-OTSUKA-JP-2013-16016

PATIENT
  Age: 61 Year
  Sex: Male

DRUGS (17)
  1. PLETAAL [Suspect]
     Indication: PERIPHERAL ARTERIAL OCCLUSIVE DISEASE
     Dosage: 100 MG MILLIGRAM(S), DAILY DOSE
     Route: 048
     Dates: start: 20120804, end: 20120831
  2. PLETAAL [Suspect]
     Dosage: 200 MG MILLIGRAM(S), DAILY DOSE
     Route: 048
     Dates: start: 20120901, end: 20131101
  3. PLETAAL [Suspect]
     Dosage: 100 MG MILLIGRAM(S), DAILY DOSE
     Route: 048
     Dates: start: 20131102, end: 20131123
  4. PRAVASTATIN SODIUM [Concomitant]
     Dosage: 5 MG MILLIGRAM(S), DAILY DOSE, ONLY ON NON-HD DAYS
     Route: 048
     Dates: end: 20131005
  5. DOXAZOSIN MESILATE [Concomitant]
     Dosage: 1 MG MILLIGRAM(S), QW, HS
     Route: 048
  6. ALLEGRA [Concomitant]
     Dosage: 60 MG MILLIGRAM(S), QAM
     Route: 048
  7. MICARDIS [Concomitant]
     Dosage: 20 MG MILLIGRAM(S), QAM
     Route: 048
  8. PLAVIX [Concomitant]
     Dosage: 50 MG MILLIGRAM(S), QAM
     Route: 048
  9. AMLODIPINE [Concomitant]
     Dosage: 2.5 MG MILLIGRAM(S), QAM
     Route: 048
  10. SHAKUYAKUKANZOUTOU [Concomitant]
     Dosage: 2.5 G GRAM(S), QD, AT THE TIME OF HD
     Route: 048
  11. ALLOPURINOL [Concomitant]
     Dosage: 100 MG MILLIGRAM(S), QPM, ONLY ON HD DAYS
     Route: 048
  12. FOSRENOL [Concomitant]
     Dosage: 500 MG MILLIGRAM(S), DAILY DOSE
     Route: 048
  13. LASIX [Concomitant]
     Dosage: 80 MG MILLIGRAM(S), DAILY DOSE
     Route: 048
  14. ARTIST [Concomitant]
     Dosage: 5 MG MILLIGRAM(S), DAILY DOSE
     Route: 048
  15. MUCOSTA [Concomitant]
     Dosage: 300 MG MILLIGRAM(S), DAILY DOSE
     Route: 048
  16. NICORANDIL [Concomitant]
     Dosage: 15 MG MILLIGRAM(S), DAILY DOSE
     Route: 048
  17. CALTAN [Concomitant]
     Dosage: 3000 MG MILLIGRAM(S), DAILY DOSE
     Route: 048

REACTIONS (1)
  - Blood creatine phosphokinase increased [Recovered/Resolved]
